FAERS Safety Report 6314242-1 (Version None)
Quarter: 2009Q3

REPORT INFORMATION
  Report Type: 
  Country: None (occurrence: None)
  Receive Date: 20090817
  Receipt Date: 20090805
  Transmission Date: 20100115
  Serious: Yes (Hospitalization)
  Sender: FDA-Public Use
  Company Number: 2008AL009032

PATIENT
  Age: 53 Year
  Sex: Male
  Weight: 110 kg

DRUGS (18)
  1. DIGOXIN [Suspect]
     Indication: CARDIAC DISORDER
     Dosage: PO
     Route: 048
  2. ASPIRIN [Concomitant]
  3. CARVEDILOL [Concomitant]
  4. CLOPIDOGREL [Concomitant]
  5. ADVAIR HFA [Concomitant]
  6. FUROSEMIDE [Concomitant]
  7. HYDRALAZINE HCL [Concomitant]
  8. HYDROCODONE [Concomitant]
  9. LANTUS [Concomitant]
  10. NOVOLOG [Concomitant]
  11. ISOSORBIDE DINITRATE [Concomitant]
  12. MAGNESIUM OXIDE [Concomitant]
  13. NITROGLYCERIN [Concomitant]
  14. POTASSIUM CHLORIDE [Concomitant]
  15. PROPOXYPHENE HCL CAP [Concomitant]
  16. SPIRIVA [Concomitant]
  17. ACETAMINOPHEN [Concomitant]
  18. VICODIN [Concomitant]

REACTIONS (8)
  - ANGINA PECTORIS [None]
  - CARDIAC FAILURE CONGESTIVE [None]
  - CONGESTIVE CARDIOMYOPATHY [None]
  - HYPERCHOLESTEROLAEMIA [None]
  - HYPERTENSION [None]
  - INJURY [None]
  - RENAL FAILURE CHRONIC [None]
  - UNEVALUABLE EVENT [None]
